FAERS Safety Report 10294367 (Version 2)
Quarter: 2014Q3

REPORT INFORMATION
  Report Type: Spontaneous
  Country: US (occurrence: US)
  Receive Date: 20140710
  Receipt Date: 20140710
  Transmission Date: 20150326
  Serious: No
  Sender: FDA-Public Use
  Company Number: US-PURDUE-USA-2014-0110748

PATIENT
  Sex: Male

DRUGS (1)
  1. BUTRANS [Suspect]
     Active Substance: BUPRENORPHINE
     Indication: PAIN
     Dosage: 20 MCG/HR, WEEKLY
     Route: 062

REACTIONS (17)
  - Product adhesion issue [Unknown]
  - Wrong technique in drug usage process [Unknown]
  - Ingrown hair [Unknown]
  - Weight decreased [Unknown]
  - Pain [Unknown]
  - Inappropriate schedule of drug administration [Unknown]
  - Drug administered at inappropriate site [Unknown]
  - Feeling abnormal [Unknown]
  - Product contamination [Unknown]
  - Drug effect decreased [Unknown]
  - Drug ineffective [Unknown]
  - Nausea [Unknown]
  - Application site dryness [Unknown]
  - Application site papules [Unknown]
  - Drug withdrawal syndrome [Unknown]
  - General physical health deterioration [Unknown]
  - Hyperhidrosis [Unknown]
